FAERS Safety Report 26175180 (Version 2)
Quarter: 2025Q4

REPORT INFORMATION
  Report Type: Spontaneous
  Country: US (occurrence: US)
  Receive Date: 20251218
  Receipt Date: 20251223
  Transmission Date: 20260117
  Serious: No
  Sender: MYLAN
  Company Number: US-MYLANLABS-2025M1101075

PATIENT
  Sex: Male

DRUGS (4)
  1. FONDAPARINUX SODIUM [Suspect]
     Active Substance: FONDAPARINUX SODIUM
     Indication: Product used for unknown indication
     Dosage: 10 MILLIGRAM
  2. FONDAPARINUX SODIUM [Suspect]
     Active Substance: FONDAPARINUX SODIUM
     Dosage: 10 MILLIGRAM
     Route: 058
  3. FONDAPARINUX SODIUM [Suspect]
     Active Substance: FONDAPARINUX SODIUM
     Dosage: 10 MILLIGRAM
     Route: 058
  4. FONDAPARINUX SODIUM [Suspect]
     Active Substance: FONDAPARINUX SODIUM
     Dosage: 10 MILLIGRAM

REACTIONS (3)
  - Device operational issue [Unknown]
  - Device issue [Unknown]
  - Product quality issue [Unknown]
